FAERS Safety Report 6068955-X (Version None)
Quarter: 2009Q1

REPORT INFORMATION
  Report Type: 
  Country: None (occurrence: None)
  Receive Date: 20090206
  Receipt Date: 20090129
  Transmission Date: 20090719
  Serious: Yes (Hospitalization, Disabling, Other)
  Sender: FDA-Public Use
  Company Number: PHHO2009JP01435

PATIENT
  Sex: Female
  Weight: 55 kg

DRUGS (10)
  1. CGS 20267 T30748+TAB [Suspect]
     Indication: BREAST CANCER
     Dosage: DOUBLE BLIND
     Route: 048
     Dates: start: 20080126, end: 20090123
  2. CYANOCOBALAMIN [Concomitant]
  3. HYALEIN [Concomitant]
  4. ISODINE [Concomitant]
  5. DIGOXIN [Concomitant]
  6. ASPIRIN [Concomitant]
  7. ALDACTONE [Concomitant]
  8. LASIX [Concomitant]
  9. BLOPRESS [Concomitant]
  10. ALOSITOL [Concomitant]

REACTIONS (3)
  - ATRIAL TACHYCARDIA [None]
  - CARDIAC FAILURE [None]
  - RESTRICTIVE CARDIOMYOPATHY [None]
